FAERS Safety Report 23916494 (Version 1)
Quarter: 2024Q2

REPORT INFORMATION
  Report Type: Spontaneous
  Country: DE (occurrence: DE)
  Receive Date: 20240529
  Receipt Date: 20240529
  Transmission Date: 20240716
  Serious: Yes (Other)
  Sender: FDA-Public Use
  Company Number: DE-BoehringerIngelheim-2024-BI-029925

PATIENT
  Age: 64 Year
  Sex: Male

DRUGS (4)
  1. AFATINIB [Suspect]
     Active Substance: AFATINIB
     Indication: Metastases to lung
     Dates: start: 201910
  2. AFATINIB [Suspect]
     Active Substance: AFATINIB
     Indication: Adenocarcinoma
  3. AFATINIB [Suspect]
     Active Substance: AFATINIB
     Indication: EGFR gene mutation
  4. CANDESARTAN [Concomitant]
     Active Substance: CANDESARTAN

REACTIONS (5)
  - Malignant neoplasm progression [Recovered/Resolved]
  - Diarrhoea [Recovered/Resolved]
  - Therapy partial responder [Recovered/Resolved]
  - Paronychia [Recovered/Resolved]
  - Therapy partial responder [Recovered/Resolved]

NARRATIVE: CASE EVENT DATE: 20210501
